FAERS Safety Report 8206981-2 (Version None)
Quarter: 2012Q1

REPORT INFORMATION
  Report Type: 
  Country: None (occurrence: None)
  Receive Date: 20120314
  Receipt Date: 20120302
  Transmission Date: 20120608
  Serious: Yes (Hospitalization)
  Sender: FDA-Public Use
  Company Number: DE-ELI_LILLY_AND_COMPANY-DE201203000482

PATIENT
  Age: 73 Year
  Sex: Female

DRUGS (3)
  1. NALOXONE [Concomitant]
  2. ANTIHYPERTENSIVES [Concomitant]
  3. FORTEO [Suspect]
     Indication: OSTEOPOROSIS
     Dosage: UNK, QD
     Route: 058
     Dates: start: 20120116

REACTIONS (3)
  - MOVEMENT DISORDER [None]
  - HERPES ZOSTER [None]
  - VIRAL INFECTION [None]
